FAERS Safety Report 6402391-9 (Version None)
Quarter: 2009Q4

REPORT INFORMATION
  Report Type: 
  Country: None (occurrence: None)
  Receive Date: 20091015
  Receipt Date: 20091008
  Transmission Date: 20100525
  Serious: Yes (Other)
  Sender: FDA-Public Use
  Company Number: DE-ABBOTT-08P-062-0472675-02

PATIENT
  Sex: Female

DRUGS (6)
  1. HUMIRA [Suspect]
     Indication: RHEUMATOID ARTHRITIS
     Route: 058
     Dates: start: 20031002, end: 20060607
  2. METHOTREXAT [Concomitant]
     Indication: RHEUMATOID ARTHRITIS
  3. FOLSAN [Concomitant]
     Indication: VITAMIN SUPPLEMENTATION
     Dosage: ONCE A DAY EXPCEPT MTX DAY
  4. TRAMADOL HYDROCHLORIDE [Concomitant]
     Indication: RHEUMATOID ARTHRITIS
  5. PANTOZOL [Concomitant]
     Indication: REFLUX OESOPHAGITIS
  6. BISOPROLOL [Concomitant]
     Indication: HYPERTENSION

REACTIONS (1)
  - VASCULAR ENCEPHALOPATHY [None]
